FAERS Safety Report 18537573 (Version 2)
Quarter: 2021Q3

REPORT INFORMATION
  Report Type: Spontaneous
  Country: US (occurrence: US)
  Receive Date: 20201123
  Receipt Date: 20210707
  Transmission Date: 20211014
  Serious: Yes (Hospitalization, Other)
  Sender: FDA-Public Use
  Company Number: US-PURDUE-USA-2020-0163924

PATIENT
  Sex: Male

DRUGS (4)
  1. OXYCODONE HCL TABLETS (RHODES 91?490) [Suspect]
     Active Substance: OXYCODONE HYDROCHLORIDE
     Indication: PRODUCT USED FOR UNKNOWN INDICATION
     Dosage: UNKNOWN
     Route: 048
  2. OXYCONTIN [Suspect]
     Active Substance: OXYCODONE HYDROCHLORIDE
     Indication: PRODUCT USED FOR UNKNOWN INDICATION
     Route: 048
  3. HYDROCODONE BITARTRATE AND ACETAMINOPHEN [Suspect]
     Active Substance: ACETAMINOPHEN\HYDROCODONE BITARTRATE
     Indication: PRODUCT USED FOR UNKNOWN INDICATION
     Dosage: UNK
     Route: 048
  4. OXYFAST [Suspect]
     Active Substance: OXYCODONE
     Indication: PRODUCT USED FOR UNKNOWN INDICATION
     Dosage: UNK
     Route: 065

REACTIONS (14)
  - Surgery [Unknown]
  - Sexual dysfunction [Unknown]
  - Anger [Unknown]
  - Cardiac disorder [Unknown]
  - Quality of life decreased [Unknown]
  - Learning disability [Unknown]
  - Drug dependence [Unknown]
  - Depression [Unknown]
  - Tooth fracture [Unknown]
  - Stress [Unknown]
  - Anxiety [Unknown]
  - Constipation [Unknown]
  - Back pain [Unknown]
  - Intracranial aneurysm [Unknown]
